FAERS Safety Report 8250981-3 (Version None)
Quarter: 2012Q2

REPORT INFORMATION
  Report Type: 
  Country: None (occurrence: None)
  Receive Date: 20120402
  Receipt Date: 20120326
  Transmission Date: 20120825
  Serious: Yes (Hospitalization)
  Sender: FDA-Public Use
  Company Number: US-ABBOTT-12P-163-0909146-00

PATIENT
  Sex: Male
  Weight: 100.79 kg

DRUGS (19)
  1. CYMBALTA [Concomitant]
     Indication: PAIN
  2. XANAX [Concomitant]
     Indication: DEPRESSION
  3. EFFEXOR [Concomitant]
     Indication: ANXIETY
  4. FOLIC ACID [Concomitant]
     Indication: VITAMIN SUPPLEMENTATION
  5. PRILOSEC [Concomitant]
     Indication: GASTROOESOPHAGEAL REFLUX DISEASE
  6. PRILOSEC [Concomitant]
  7. HYDROCODONE BITARTRATE [Concomitant]
     Indication: PAIN
  8. EFFEXOR [Concomitant]
     Indication: DEPRESSION
  9. VITAMIN D [Concomitant]
     Indication: VITAMIN SUPPLEMENTATION
  10. HUMIRA [Suspect]
     Indication: RHEUMATOID ARTHRITIS
     Dates: start: 20120101
  11. CYMBALTA [Concomitant]
     Indication: RHEUMATOID ARTHRITIS
  12. FOLIC ACID [Concomitant]
     Indication: RHEUMATOID ARTHRITIS
  13. NAPROXEN [Concomitant]
     Indication: RHEUMATOID ARTHRITIS
  14. VITAMIN D [Concomitant]
     Indication: VITAMIN D DECREASED
  15. ASPIRIN [Concomitant]
     Indication: PRODUCT USED FOR UNKNOWN INDICATION
  16. XANAX [Concomitant]
     Indication: ANXIETY
  17. METHOTREXATE [Concomitant]
  18. METHOTREXATE [Concomitant]
     Indication: RHEUMATOID ARTHRITIS
     Dates: start: 20111101
  19. OXYCODONE HCL [Concomitant]
     Indication: ARTHRALGIA

REACTIONS (12)
  - PRESYNCOPE [None]
  - INFLUENZA [None]
  - DIZZINESS [None]
  - CHEST PAIN [None]
  - CARDIOVASCULAR DISORDER [None]
  - CHEST DISCOMFORT [None]
  - ASTHENIA [None]
  - HEART RATE IRREGULAR [None]
  - HYPOTENSION [None]
  - ATRIAL FIBRILLATION [None]
  - HYPERTENSION [None]
  - CARDIAC FAILURE [None]
